FAERS Safety Report 12674873 (Version 1)
Quarter: 2016Q3

REPORT INFORMATION
  Report Type: Spontaneous
  Country: US (occurrence: US)
  Receive Date: 20160822
  Receipt Date: 20160822
  Transmission Date: 20161109
  Serious: No
  Sender: FDA-Public Use
  Company Number: US-FRESENIUS KABI-FK201605640

PATIENT
  Age: 68 Year
  Sex: Male
  Weight: 89.18 kg

DRUGS (1)
  1. XYLOCAINE WITH EPINEPHRINE (EPINEPHRINE BITARTRATE\LIDOCAINE HYDROCHLORIDE) [Suspect]
     Active Substance: EPINEPHRINE BITARTRATE\LIDOCAINE HYDROCHLORIDE
     Indication: INFILTRATION ANAESTHESIA
     Route: 050
     Dates: start: 20160817, end: 20160817

REACTIONS (1)
  - Drug ineffective [Recovered/Resolved]

NARRATIVE: CASE EVENT DATE: 20160817
